FAERS Safety Report 17135241 (Version 1)
Quarter: 2019Q4

REPORT INFORMATION
  Report Type: Spontaneous
  Country: US (occurrence: US)
  Receive Date: 20191118
  Receipt Date: 20191118
  Transmission Date: 20200122
  Serious: Yes (Hospitalization)
  Sender: FDA-Public Use
  Company Number: None

PATIENT
  Age: 17 Year
  Sex: Female

DRUGS (14)
  1. LYRICA [Concomitant]
     Active Substance: PREGABALIN
  2. AMITRIPTYLINE [Suspect]
     Active Substance: AMITRIPTYLINE
  3. LORAZEPAM. [Concomitant]
     Active Substance: LORAZEPAM
  4. SYNTHROID [Concomitant]
     Active Substance: LEVOTHYROXINE SODIUM
  5. DICYCLOMINE [Concomitant]
     Active Substance: DICYCLOMINE HYDROCHLORIDE
  6. HYDROXYZ HCI [Concomitant]
  7. MONTELUKAST [Concomitant]
     Active Substance: MONTELUKAST SODIUM
  8. RANITIDINE. [Concomitant]
     Active Substance: RANITIDINE
  9. ENOXAPARIN [Concomitant]
     Active Substance: ENOXAPARIN
  10. XOLAIR [Suspect]
     Active Substance: OMALIZUMAB
     Indication: FUNGAL INFECTION
     Dosage: ?          OTHER FREQUENCY:Q2W;?
     Route: 058
     Dates: start: 20190927
  11. CORLANOR [Concomitant]
     Active Substance: IVABRADINE HYDROCHLORIDE
  12. PREDNISONE. [Concomitant]
     Active Substance: PREDNISONE
  13. PYRIDOSTIGMI [Concomitant]
  14. DEXTROAMPHET SACCHARAT, AMPHET ASPARTATE, DEXTROAMPHET SULFATE AND AMPHET SULFAT [Concomitant]
     Active Substance: AMPHETAMINE ASPARTATE\AMPHETAMINE SULFATE\DEXTROAMPHETAMINE SACCHARATE\DEXTROAMPHETAMINE SULFATE

REACTIONS (1)
  - Blood test [None]

NARRATIVE: CASE EVENT DATE: 20191110
